FAERS Safety Report 6857170-5 (Version None)
Quarter: 2010Q3

REPORT INFORMATION
  Report Type: 
  Country: None (occurrence: None)
  Receive Date: 20100719
  Receipt Date: 20091218
  Transmission Date: 20110219
  Serious: No
  Sender: FDA-Public Use
  Company Number: US-KINGPHARMUSA00001-K200901573

PATIENT
  Sex: Male

DRUGS (9)
  1. LEVOXYL [Suspect]
     Dosage: 25 MCG, UNK
  2. ZOCOR [Concomitant]
     Dosage: UNK
  3. NORVASC [Concomitant]
     Dosage: UNK
  4. DEPAKOTE [Concomitant]
     Dosage: UNK
  5. ACCUPRIL [Concomitant]
     Dosage: UNK
  6. KLONOPIN [Concomitant]
     Dosage: UNK
  7. BUSPAR [Concomitant]
     Dosage: UNK
  8. PATANOL [Concomitant]
     Dosage: UNK
  9. NITROSTAT [Concomitant]
     Dosage: UNK

REACTIONS (2)
  - ANGINA PECTORIS [None]
  - HEADACHE [None]
